FAERS Safety Report 4552781-4 (Version None)
Quarter: 2005Q1

REPORT INFORMATION
  Report Type: 
  Country: None (occurrence: None)
  Receive Date: 20050114
  Receipt Date: 20040910
  Transmission Date: 20050727
  Serious: Yes (Other)
  Sender: FDA-Public Use
  Company Number: FI-ROCHE-380468

PATIENT
  Age: 50 Year
  Sex: Female
  Weight: 69 kg

DRUGS (4)
  1. PEGASYS [Suspect]
     Indication: HEPATITIS C
     Route: 058
     Dates: start: 20040123
  2. PEGASYS [Suspect]
     Route: 058
     Dates: start: 20040315
  3. PEGASYS [Suspect]
     Route: 058
     Dates: start: 20040615, end: 20040615
  4. COPEGUS [Concomitant]
     Indication: HEPATITIS C
     Dates: start: 20040123, end: 20040615

REACTIONS (6)
  - APHTHOUS STOMATITIS [None]
  - BLOOD THYROID STIMULATING HORMONE INCREASED [None]
  - HYPERTHYROIDISM [None]
  - NEUTROPENIA [None]
  - ORAL MUCOSAL BLISTERING [None]
  - ORAL MUCOSAL DISORDER [None]
